FAERS Safety Report 9158341 (Version 1)
Quarter: 2013Q1

REPORT INFORMATION
  Report Type: Spontaneous
  Country: US (occurrence: US)
  Receive Date: 20130312
  Receipt Date: 20130312
  Transmission Date: 20140127
  Serious: Yes (Hospitalization)
  Sender: FDA-Public Use
  Company Number: US-BAYER-2013-027620

PATIENT
  Age: 18 Year
  Sex: Female

DRUGS (12)
  1. YASMIN [Suspect]
  2. OCELLA [Suspect]
  3. CRESTOR [Concomitant]
  4. JANUVIA [Concomitant]
  5. LIDOCAINE [Concomitant]
     Route: 061
  6. LISINOPRIL [Concomitant]
  7. OMNICEF [Concomitant]
  8. METFORMIN [Concomitant]
  9. ACYCLOVIR [ACICLOVIR] [Concomitant]
  10. MORPHINE [Concomitant]
     Indication: PAIN
  11. VICODIN [Concomitant]
     Indication: PAIN
  12. SYNTHROID [Concomitant]

REACTIONS (2)
  - Deep vein thrombosis [None]
  - Thrombophlebitis superficial [None]
